FAERS Safety Report 13802214 (Version 3)
Quarter: 2018Q4

REPORT INFORMATION
  Report Type: Report from Study
  Country: US (occurrence: US)
  Receive Date: 20170727
  Receipt Date: 20181009
  Transmission Date: 20190204
  Serious: Yes (Hospitalization, Other)
  Sender: FDA-Public Use
  Company Number: US-ACTELION-A-NJ2017-153041

PATIENT
  Age: 78 Year
  Sex: Male
  Weight: 96.6 kg

DRUGS (5)
  1. ESBRIET [Concomitant]
     Active Substance: PIRFENIDONE
  2. ASPIRIN. [Concomitant]
     Active Substance: ASPIRIN
  3. PLAVIX [Concomitant]
     Active Substance: CLOPIDOGREL BISULFATE
     Dosage: UNK
  4. OPSUMIT [Suspect]
     Active Substance: MACITENTAN
     Indication: PULMONARY ARTERIAL HYPERTENSION
     Dosage: 10 MG, QD
     Route: 048
  5. OXYGEN. [Concomitant]
     Active Substance: OXYGEN

REACTIONS (14)
  - Fluid retention [Unknown]
  - Faeces discoloured [Unknown]
  - Oesophageal neoplasm [Unknown]
  - Pericardial effusion [Unknown]
  - Dyspnoea [Unknown]
  - Weight decreased [Unknown]
  - Therapy non-responder [Unknown]
  - Pulmonary arterial pressure increased [Unknown]
  - Fall [Unknown]
  - Transfusion [Unknown]
  - Loss of consciousness [Unknown]
  - Peripheral swelling [Not Recovered/Not Resolved]
  - Haemoglobin decreased [Not Recovered/Not Resolved]
  - Anaemia [Unknown]

NARRATIVE: CASE EVENT DATE: 20170716
